FAERS Safety Report 12742068 (Version 1)
Quarter: 2016Q3

REPORT INFORMATION
  Report Type: Spontaneous
  Country: AR (occurrence: AR)
  Receive Date: 20160914
  Receipt Date: 20160914
  Transmission Date: 20161109
  Serious: Yes (Hospitalization, Other)
  Sender: FDA-Public Use
  Company Number: AR-PFIZER INC-2016414657

PATIENT
  Age: 42 Year
  Sex: Male

DRUGS (1)
  1. SUNITINIB MALATE. [Suspect]
     Active Substance: SUNITINIB MALATE
     Indication: RENAL CANCER METASTATIC
     Dosage: 50 MG, CYCLIC (4/2 SCHEME)

REACTIONS (5)
  - Thrombocytopenia [Unknown]
  - Disease progression [Unknown]
  - Lung disorder [Unknown]
  - Renal cancer metastatic [Unknown]
  - Hypothyroidism [Unknown]
